FAERS Safety Report 11364906 (Version 3)
Quarter: 2015Q3

REPORT INFORMATION
  Report Type: Spontaneous
  Country: US (occurrence: US)
  Receive Date: 20150811
  Receipt Date: 20150820
  Transmission Date: 20151125
  Serious: No
  Sender: FDA-Public Use
  Company Number: US-TEVA-585651USA

PATIENT
  Sex: Male

DRUGS (2)
  1. NUVIGIL [Suspect]
     Active Substance: ARMODAFINIL
     Route: 065
     Dates: start: 2014
  2. PROVIGIL [Suspect]
     Active Substance: MODAFINIL
     Route: 065

REACTIONS (3)
  - Drug effect decreased [Unknown]
  - Wrong technique in product usage process [Unknown]
  - Intentional product misuse [Unknown]
